FAERS Safety Report 8196597-9 (Version None)
Quarter: 2012Q1

REPORT INFORMATION
  Report Type: 
  Country: None (occurrence: None)
  Receive Date: 20120309
  Receipt Date: 20120301
  Transmission Date: 20120608
  Serious: Yes (Hospitalization, Other)
  Sender: FDA-Public Use
  Company Number: US-BAYER-2011-075680

PATIENT
  Age: 19 Year
  Sex: Female
  Weight: 100 kg

DRUGS (12)
  1. YAZ [Suspect]
     Dosage: UNK
     Dates: start: 20070101
  2. YAZ [Suspect]
     Indication: PRODUCT USED FOR UNKNOWN INDICATION
     Dosage: UNK
     Dates: start: 20050101, end: 20070101
  3. PREDNISOLONE ACETATE [Concomitant]
     Dosage: 1 %, UNK
  4. TYLENOL [Concomitant]
  5. PEPCID [Concomitant]
  6. SEASONALE [Concomitant]
  7. ZYMAR [Concomitant]
     Dosage: 0.3 %, UNK
  8. YASMIN [Suspect]
     Dosage: UNK
     Dates: start: 20070101
  9. ANTIBIOTICS [Concomitant]
  10. DARVOCET [Concomitant]
  11. YASMIN [Suspect]
     Indication: PRODUCT USED FOR UNKNOWN INDICATION
     Dosage: UNK
     Dates: start: 20050101, end: 20070101
  12. NEXIUM [Concomitant]
     Indication: ABDOMINAL PAIN UPPER

REACTIONS (4)
  - GALLBLADDER DISORDER [None]
  - PAIN [None]
  - EMOTIONAL DISTRESS [None]
  - CHOLECYSTITIS CHRONIC [None]
